FAERS Safety Report 9302585 (Version 1)
Quarter: 2013Q2

REPORT INFORMATION
  Report Type: Spontaneous
  Country: CH (occurrence: None)
  Receive Date: 20130517
  Receipt Date: 20130517
  Transmission Date: 20140414
  Serious: Yes (Other)
  Sender: FDA-Public Use
  Company Number: VAL_02510_2013

PATIENT
  Age: 27 Year
  Sex: Female

DRUGS (2)
  1. METHERGINE [Suspect]
     Indication: PRODUCT USED FOR UNKNOWN INDICATION
     Route: 048
     Dates: start: 20120407, end: 20120410
  2. CYTOTEC [Suspect]
     Indication: PRODUCT USED FOR UNKNOWN INDICATION
     Route: 048
     Dates: start: 20120407, end: 20120407

REACTIONS (6)
  - Incorrect drug administration duration [None]
  - Pregnancy [None]
  - Exposure during pregnancy [None]
  - Haemorrhage [None]
  - Abdominal pain [None]
  - Abortion induced [None]
